FAERS Safety Report 6728284-5 (Version None)
Quarter: 2010Q2

REPORT INFORMATION
  Report Type: 
  Country: None (occurrence: None)
  Receive Date: 20100512
  Receipt Date: 20100429
  Transmission Date: 20101027
  Serious: Yes (Hospitalization)
  Sender: FDA-Public Use
  Company Number: 7003289

PATIENT
  Age: 38 Year
  Sex: Female
  Weight: 50 kg

DRUGS (1)
  1. REBIF [Suspect]
     Indication: DRUG USE FOR UNKNOWN INDICATION
     Dosage: 22 MCG, 3 IN 1 WK, SUBCUTANEOUS
     Route: 058
     Dates: start: 20081014

REACTIONS (6)
  - BONE PAIN [None]
  - DRUG INEFFECTIVE [None]
  - HALLUCINATION [None]
  - JOINT ABSCESS [None]
  - MUSCLE SPASMS [None]
  - WEIGHT DECREASED [None]
